FAERS Safety Report 9721470 (Version 4)
Quarter: 2014Q1

REPORT INFORMATION
  Report Type: Report from Study
  Country: JP (occurrence: JP)
  Receive Date: 20131129
  Receipt Date: 20140210
  Transmission Date: 20141002
  Serious: Yes (Other)
  Sender: FDA-Public Use
  Company Number: JP-ASTRAZENECA-2013SE87422

PATIENT
  Age: 23578 Day
  Sex: Male
  Weight: 57.4 kg

DRUGS (13)
  1. AZD6140 [Suspect]
     Indication: PERIPHERAL ARTERIAL OCCLUSIVE DISEASE
     Route: 048
     Dates: start: 20130515, end: 20130902
  2. AZD6140 [Suspect]
     Indication: PERIPHERAL ARTERIAL OCCLUSIVE DISEASE
     Route: 048
     Dates: start: 20131113
  3. AMBROXOL [Concomitant]
     Indication: PRODUCTIVE COUGH
     Route: 048
     Dates: start: 20130902, end: 20131117
  4. FAMOTIDINE [Concomitant]
     Indication: GASTRITIS
     Route: 048
     Dates: start: 20130902, end: 20131117
  5. HUSCODE [Concomitant]
     Indication: ANTITUSSIVE THERAPY
     Route: 048
     Dates: start: 20130902, end: 20131117
  6. MAGMITT [Concomitant]
     Indication: GASTRITIS
     Route: 048
     Dates: start: 20130902, end: 20131117
  7. UNIPHYL LA [Concomitant]
     Indication: BRONCHIAL DISORDER
     Route: 048
     Dates: start: 20130902, end: 20131117
  8. ACINON [Concomitant]
     Indication: PRODUCTIVE COUGH
     Route: 048
     Dates: start: 20130424
  9. JANUVIA [Concomitant]
     Indication: PRODUCTIVE COUGH
     Route: 048
     Dates: start: 20130424
  10. LIVALO [Concomitant]
     Indication: PRODUCTIVE COUGH
     Route: 048
     Dates: start: 20130424
  11. NU-LOTAN [Concomitant]
     Indication: PRODUCTIVE COUGH
     Route: 048
     Dates: start: 20130424
  12. PROCYLIN [Concomitant]
     Indication: PRODUCTIVE COUGH
     Route: 048
     Dates: start: 20130424, end: 20131113
  13. ROHYPNOL [Concomitant]
     Indication: PRODUCTIVE COUGH
     Route: 048
     Dates: start: 20130424, end: 20131211

REACTIONS (1)
  - Lung neoplasm malignant [Not Recovered/Not Resolved]
